FAERS Safety Report 7267887-9 (Version None)
Quarter: 2011Q1

REPORT INFORMATION
  Report Type: 
  Country: None (occurrence: None)
  Receive Date: 20110201
  Receipt Date: 20110126
  Transmission Date: 20110831
  Serious: Yes (Death)
  Sender: FDA-Public Use
  Company Number: JP-ROCHE-756143

PATIENT
  Age: 32 Year
  Sex: Female

DRUGS (1)
  1. TAMIFLU [Suspect]
     Indication: STREPTOCOCCAL INFECTION
     Dosage: DOSE FORM: UNCERTAINTY, NOTE: DOSAGE IS UNCERTAIN.
     Route: 048

REACTIONS (1)
  - DISEASE PROGRESSION [None]
